FAERS Safety Report 21187370 (Version 1)
Quarter: 2022Q3

REPORT INFORMATION
  Report Type: Spontaneous
  Country: US (occurrence: US)
  Receive Date: 20220808
  Receipt Date: 20220808
  Transmission Date: 20221026
  Serious: Yes (Other)
  Sender: FDA-Public Use
  Company Number: US-INCYTE CORPORATION-2022IN007607

PATIENT

DRUGS (3)
  1. PEMAZYRE [Suspect]
     Active Substance: PEMIGATINIB
     Indication: Cholangiocarcinoma
     Dosage: 13.5 MILLIGRAM, QD (FOR 14 CONSECUTIVE DAYS FOLLOWED BY 7 DAYS OFF)
     Route: 048
  2. PEMAZYRE [Suspect]
     Active Substance: PEMIGATINIB
     Dosage: 9 MILLIGRAM, QD
     Route: 048
  3. PEMAZYRE [Suspect]
     Active Substance: PEMIGATINIB
     Dosage: 4.5 MILLIGRAM, QD
     Route: 048

REACTIONS (2)
  - Subretinal fluid [Unknown]
  - Serous retinal detachment [Recovering/Resolving]
